FAERS Safety Report 9714545 (Version 1)
Quarter: 2013Q4

REPORT INFORMATION
  Report Type: Spontaneous
  Country: US (occurrence: US)
  Receive Date: 20131126
  Receipt Date: 20131126
  Transmission Date: 20140711
  Serious: Yes (Other)
  Sender: FDA-Public Use
  Company Number: US-CUBIST PHARMACEUTICAL, INC.-2013CBST001187

PATIENT
  Sex: 0

DRUGS (2)
  1. CUBICIN [Suspect]
     Indication: STAPHYLOCOCCAL BACTERAEMIA
     Dosage: 6 MG/KG, QD
     Route: 042
  2. ZOSYN [Concomitant]
     Indication: STAPHYLOCOCCAL BACTERAEMIA
     Dosage: UNK UNK
     Route: 042

REACTIONS (3)
  - Blood creatine phosphokinase increased [Unknown]
  - Blood creatinine increased [Unknown]
  - Chromaturia [Unknown]
